FAERS Safety Report 16003869 (Version 6)
Quarter: 2019Q3

REPORT INFORMATION
  Report Type: Report from Study
  Country: US (occurrence: US)
  Receive Date: 20190226
  Receipt Date: 20190730
  Transmission Date: 20191004
  Serious: Yes (Hospitalization)
  Sender: FDA-Public Use
  Company Number: US-ROCHE-2272442

PATIENT
  Age: 57 Year
  Sex: Male
  Weight: 130.1 kg

DRUGS (5)
  1. LENALIDOMIDE [Suspect]
     Active Substance: LENALIDOMIDE
     Indication: DIFFUSE LARGE B-CELL LYMPHOMA
     Dosage: LAST DOSE ON 21/FEB/2019.
     Route: 048
     Dates: start: 20190208
  2. VENETOCLAX. [Suspect]
     Active Substance: VENETOCLAX
     Indication: DIFFUSE LARGE B-CELL LYMPHOMA
     Dosage: ESCALATING DOSES OF VENETOCLAX PO: 50MG DAYS 2-5 (09-FEB-2019 TO 12-FEB-2019), 200MG DAYS 13-15 (13-
     Route: 048
     Dates: start: 20190209
  3. OBINUTUZUMAB. [Suspect]
     Active Substance: OBINUTUZUMAB
     Indication: DIFFUSE LARGE B-CELL LYMPHOMA
     Dosage: LAST DOSE ON 09/FEB/2019
     Route: 042
     Dates: start: 20190208
  4. IBRUTINIB [Suspect]
     Active Substance: IBRUTINIB
     Indication: DIFFUSE LARGE B-CELL LYMPHOMA
     Dosage: LAST DOSE ON 21/FEB/2019.
     Route: 048
     Dates: start: 20190208
  5. PREDNISONE. [Suspect]
     Active Substance: PREDNISONE
     Indication: DIFFUSE LARGE B-CELL LYMPHOMA
     Dosage: LAST DOSE ON 14/FEB/2019.
     Route: 048
     Dates: start: 20190208

REACTIONS (2)
  - Embolism [Recovered/Resolved]
  - Oesophageal infection [Recovered/Resolved]

NARRATIVE: CASE EVENT DATE: 20190222
